FAERS Safety Report 12435473 (Version 1)
Quarter: 2016Q2

REPORT INFORMATION
  Report Type: Spontaneous
  Country: US (occurrence: US)
  Receive Date: 20160603
  Receipt Date: 20160603
  Transmission Date: 20160815
  Serious: No
  Sender: FDA-Public Use
  Company Number: US-ROCHE-1525056

PATIENT
  Age: 68 Year
  Sex: Female

DRUGS (3)
  1. XELODA [Suspect]
     Active Substance: CAPECITABINE
     Indication: NEOPLASM MALIGNANT
     Route: 048
     Dates: start: 20140731, end: 20141222
  2. XELODA [Suspect]
     Active Substance: CAPECITABINE
     Dosage: 2 TABS BID
     Route: 048
     Dates: start: 201407
  3. TEMODAR [Concomitant]
     Active Substance: TEMOZOLOMIDE
     Route: 048

REACTIONS (4)
  - Pyrexia [Unknown]
  - Fatigue [Unknown]
  - Palmar-plantar erythrodysaesthesia syndrome [Unknown]
  - Malaise [Unknown]

NARRATIVE: CASE EVENT DATE: 20141222
